FAERS Safety Report 20779072 (Version 1)
Quarter: 2022Q2

REPORT INFORMATION
  Report Type: Spontaneous
  Country: US (occurrence: US)
  Receive Date: 20220503
  Receipt Date: 20220503
  Transmission Date: 20220721
  Serious: No
  Sender: FDA-Public Use
  Company Number: US-PFIZER INC-2019164825

PATIENT
  Age: 66 Year
  Sex: Male
  Weight: 139 kg

DRUGS (2)
  1. LYRICA [Suspect]
     Active Substance: PREGABALIN
     Indication: Type 2 diabetes mellitus
     Dosage: 100 MG, 3X/DAY
     Route: 048
     Dates: start: 20190409
  2. LYRICA [Suspect]
     Active Substance: PREGABALIN
     Indication: Hyperglycaemia

REACTIONS (1)
  - Hypoacusis [Unknown]
